FAERS Safety Report 7310459-8 (Version None)
Quarter: 2011Q1

REPORT INFORMATION
  Report Type: 
  Country: None (occurrence: None)
  Receive Date: 20110224
  Receipt Date: 20100908
  Transmission Date: 20110831
  Serious: No
  Sender: FDA-Public Use
  Company Number: US-BRISTOL-MYERS SQUIBB COMPANY-15276702

PATIENT
  Sex: Male

DRUGS (2)
  1. METAGLIP [Suspect]
  2. METFORMIN HCL [Suspect]

REACTIONS (3)
  - BLOOD GLUCOSE INCREASED [None]
  - BLOOD GLUCOSE DECREASED [None]
  - FEELING ABNORMAL [None]
